FAERS Safety Report 7406975-0 (Version None)
Quarter: 2011Q2

REPORT INFORMATION
  Report Type: 
  Country: None (occurrence: None)
  Receive Date: 20110411
  Receipt Date: 20101018
  Transmission Date: 20111010
  Serious: Yes (Life-Threatening, Hospitalization, Other)
  Sender: FDA-Public Use
  Company Number: US-BAYER-201020131NA

PATIENT
  Age: 21 Year
  Sex: Female
  Weight: 64.399 kg

DRUGS (6)
  1. YASMIN [Suspect]
     Dosage: UNK
     Dates: start: 20040430
  2. YASMIN [Suspect]
     Indication: PRODUCT USED FOR UNKNOWN INDICATION
     Route: 048
     Dates: start: 20070201, end: 20070101
  3. WHOLE BLOOD [Concomitant]
  4. YAZ [Suspect]
     Indication: PRODUCT USED FOR UNKNOWN INDICATION
     Route: 048
     Dates: end: 20071109
  5. BLOOD AND RELATED PRODUCTS [Concomitant]
  6. LORTAB [Concomitant]

REACTIONS (13)
  - ABDOMINAL PAIN [None]
  - PREMATURE SEPARATION OF PLACENTA [None]
  - CHOLECYSTITIS CHRONIC [None]
  - GALLBLADDER DISORDER [None]
  - PLACENTA PRAEVIA [None]
  - CAESAREAN SECTION [None]
  - GALLBLADDER ENLARGEMENT [None]
  - ABDOMINAL PAIN UPPER [None]
  - CHOLELITHIASIS [None]
  - COMPLICATION OF PREGNANCY [None]
  - CARDIAC ARREST [None]
  - HYPERTENSION [None]
  - PREGNANCY ON ORAL CONTRACEPTIVE [None]
